FAERS Safety Report 14521654 (Version 1)
Quarter: 2018Q1

REPORT INFORMATION
  Report Type: Spontaneous
  Country: GB (occurrence: GB)
  Receive Date: 20180212
  Receipt Date: 20180212
  Transmission Date: 20180509
  Serious: Yes (Other)
  Sender: FDA-Public Use
  Company Number: GB-IMPAX LABORATORIES, INC-2018-IPXL-00382

PATIENT
  Age: 25 Year
  Sex: Female

DRUGS (3)
  1. 2,4 DINITROPHENOL [Suspect]
     Active Substance: 2,4-DINITROPHENOL
     Indication: WEIGHT INCREASED
     Dosage: TWO TABLETS, UNK
     Route: 065
  2. DANTROLENE SODIUM. [Suspect]
     Active Substance: DANTROLENE SODIUM
     Indication: PRODUCT USE IN UNAPPROVED INDICATION
  3. DANTROLENE SODIUM. [Suspect]
     Active Substance: DANTROLENE SODIUM
     Indication: TOXICITY TO VARIOUS AGENTS
     Dosage: 2.5 MG/KG, UNK
     Route: 065

REACTIONS (2)
  - Cardiac arrest [Not Recovered/Not Resolved]
  - Drug ineffective for unapproved indication [Unknown]
